FAERS Safety Report 12227667 (Version 1)
Quarter: 2016Q2

REPORT INFORMATION
  Report Type: Spontaneous
  Country: SE (occurrence: SE)
  Receive Date: 20160401
  Receipt Date: 20160401
  Transmission Date: 20160815
  Serious: Yes (Hospitalization, Disabling)
  Sender: FDA-Public Use
  Company Number: SE-ABBVIE-16K-150-1592589-00

PATIENT
  Age: 55 Year
  Sex: Male
  Weight: 80 kg

DRUGS (1)
  1. HUMIRA [Suspect]
     Active Substance: ADALIMUMAB
     Indication: ANKYLOSING SPONDYLITIS
     Route: 058
     Dates: start: 20150530, end: 20151115

REACTIONS (10)
  - Neck pain [Not Recovered/Not Resolved]
  - Alopecia [Not Recovered/Not Resolved]
  - Peripheral swelling [Not Recovered/Not Resolved]
  - Local swelling [Not Recovered/Not Resolved]
  - Fatigue [Not Recovered/Not Resolved]
  - Pruritus [Not Recovered/Not Resolved]
  - Ankylosing spondylitis [Not Recovered/Not Resolved]
  - Rash macular [Not Recovered/Not Resolved]
  - Skin ulcer haemorrhage [Not Recovered/Not Resolved]
  - Listless [Not Recovered/Not Resolved]

NARRATIVE: CASE EVENT DATE: 20151101
